FAERS Safety Report 17554315 (Version 1)
Quarter: 2020Q1

REPORT INFORMATION
  Report Type: Spontaneous
  Country: GB (occurrence: GB)
  Receive Date: 20200318
  Receipt Date: 20200318
  Transmission Date: 20200409
  Serious: Yes (Hospitalization, Disabling)
  Sender: FDA-Public Use
  Company Number: GB-DEXPHARM-20200254

PATIENT
  Age: 59 Year
  Sex: Female

DRUGS (16)
  1. BRALTUS [Concomitant]
     Active Substance: TIOTROPIUM BROMIDE
     Route: 055
  2. URSODEOXYCHOLIC ACID [Concomitant]
     Active Substance: URSODIOL
  3. SALBUTAMOL [Concomitant]
     Active Substance: ALBUTEROL
     Dosage: NIGHT ; AS NECESSARY
     Route: 055
  4. CARBOCISTEINE [Concomitant]
     Active Substance: CARBOCYSTEINE
     Dosage: NIGHT
     Route: 048
  5. COCODAMOL [Concomitant]
     Active Substance: ACETAMINOPHEN\CODEINE PHOSPHATE
     Dosage: NIGHT
  6. FOSTAIR [Concomitant]
     Active Substance: BECLOMETHASONE\FORMOTEROL
     Dosage: NIGHT
     Route: 055
  7. ZAPAIN [Concomitant]
     Active Substance: ACETAMINOPHEN\CODEINE PHOSPHATE
     Dosage: NIGHT
  8. VENLAFAXINE [Suspect]
     Active Substance: VENLAFAXINE HYDROCHLORIDE
     Route: 048
  9. MONTELUKAST [Concomitant]
     Active Substance: MONTELUKAST SODIUM
     Dosage: NIGHT
     Route: 048
  10. PROPRANOLOL [Concomitant]
     Active Substance: PROPRANOLOL HYDROCHLORIDE
     Dosage: NIGHT
  11. MIRTAZAPINE. [Interacting]
     Active Substance: MIRTAZAPINE
     Dosage: NIGHT
     Route: 048
  12. OMEPRAZOLE. [Concomitant]
     Active Substance: OMEPRAZOLE
  13. CEFALEXIN [Concomitant]
     Active Substance: CEPHALEXIN
     Dates: start: 20190617
  14. ZOPICLONE [Concomitant]
     Active Substance: ZOPICLONE
     Dosage: NIGHT
  15. DICLOFENAC [Concomitant]
     Active Substance: DICLOFENAC
     Dosage: NIGHT
  16. FLUCONAZOLE. [Concomitant]
     Active Substance: FLUCONAZOLE
     Dosage: NIGHT
     Dates: start: 20190625, end: 20190625

REACTIONS (2)
  - Drug interaction [Unknown]
  - Parkinsonism [Recovered/Resolved]
